FAERS Safety Report 7877582-0 (Version None)
Quarter: 2011Q4

REPORT INFORMATION
  Report Type: 
  Country: None (occurrence: None)
  Receive Date: 20111031
  Receipt Date: 20111021
  Transmission Date: 20120403
  Serious: Yes (Hospitalization, Other)
  Sender: FDA-Public Use
  Company Number: US-ASTRAZENECA-2011SE63568

PATIENT
  Age: 71 Year
  Sex: Male

DRUGS (15)
  1. CELEXA [Concomitant]
     Route: 065
  2. ASPIRIN [Concomitant]
     Route: 065
  3. NAMENDA [Concomitant]
     Route: 065
  4. HYDROCHLOROTHIAZIDE [Concomitant]
     Route: 065
  5. ATIVAN [Concomitant]
     Dosage: PRN
     Route: 065
  6. PAXIL [Concomitant]
  7. ZANTAC [Concomitant]
  8. GALANTAMINE HYDROBROMIDE [Concomitant]
     Route: 065
  9. PAXIL [Concomitant]
  10. ZOCOR [Concomitant]
  11. TYLENOL-500 [Concomitant]
     Indication: PAIN
  12. SEROQUEL [Suspect]
     Dosage: 25 MG, ONE AT 4 PM
     Route: 048
  13. SEROQUEL [Suspect]
     Route: 048
  14. RAZADYNE [Concomitant]
  15. PEPCID [Concomitant]

REACTIONS (5)
  - AGGRESSION [None]
  - DEMENTIA [None]
  - AGITATION [None]
  - IMPAIRED SELF-CARE [None]
  - RESTLESSNESS [None]
